FAERS Safety Report 10206593 (Version 2)
Quarter: 2015Q1

REPORT INFORMATION
  Report Type: Spontaneous
  Country: US (occurrence: US)
  Receive Date: 20140530
  Receipt Date: 20150210
  Transmission Date: 20150720
  Serious: No
  Sender: FDA-Public Use
  Company Number: US-GLAXOSMITHKLINE-A1051493A

PATIENT

DRUGS (4)
  1. FLOLAN [Suspect]
     Active Substance: EPOPROSTENOL SODIUM
     Dates: start: 20030305
  2. FLOLAN [Suspect]
     Active Substance: EPOPROSTENOL SODIUM
     Indication: COR PULMONALE CHRONIC
     Dosage: 23.7 NG/KG/MIN CONTINUOUSLY30,000 NG/ML CONCENTRATION77 ML/DAY PUMP RATE1.5 MG VIAL STRENGTH
     Route: 042
     Dates: start: 20030305
  3. FLOLAN [Suspect]
     Active Substance: EPOPROSTENOL SODIUM
     Dates: start: 20030305
  4. ADCIRCA [Concomitant]
     Active Substance: TADALAFIL

REACTIONS (5)
  - Epistaxis [Not Recovered/Not Resolved]
  - Headache [Unknown]
  - Flushing [Unknown]
  - Fatigue [Unknown]
  - Drug administration error [Unknown]

NARRATIVE: CASE EVENT DATE: 201310
